FAERS Safety Report 7429694-3 (Version None)
Quarter: 2011Q2

REPORT INFORMATION
  Report Type: 
  Country: None (occurrence: None)
  Receive Date: 20110421
  Receipt Date: 20110412
  Transmission Date: 20111010
  Serious: Yes (Hospitalization)
  Sender: FDA-Public Use
  Company Number: FR-JNJFOC-20110408972

PATIENT
  Sex: Male

DRUGS (9)
  1. LERCAN [Concomitant]
  2. METFORMIN [Concomitant]
  3. ACETAMINOPHEN AND TRAMADOL HCL [Suspect]
     Indication: PRODUCT USED FOR UNKNOWN INDICATION
     Route: 048
  4. VALSARTAN/HYDROCHLOORTHIAZIDE [Concomitant]
  5. FLUVASTATIN [Concomitant]
  6. ZOMETA [Concomitant]
     Indication: METASTASES TO BONE
     Route: 042
  7. BISOPROLOL FUMARATE [Concomitant]
  8. LAROXYL [Concomitant]
  9. ALLOPURINOL [Concomitant]

REACTIONS (7)
  - AGITATION [None]
  - HYPOKALAEMIA [None]
  - BLOOD PHOSPHORUS DECREASED [None]
  - HYPOALBUMINAEMIA [None]
  - CONFUSIONAL STATE [None]
  - OVERDOSE [None]
  - HYPONATRAEMIA [None]
